FAERS Safety Report 6668195-7 (Version None)
Quarter: 2010Q2

REPORT INFORMATION
  Report Type: 
  Country: None (occurrence: None)
  Receive Date: 20100406
  Receipt Date: 20100401
  Transmission Date: 20101027
  Serious: Yes (Hospitalization)
  Sender: FDA-Public Use
  Company Number: FR-WYE-G05880310

PATIENT
  Age: 23 Year
  Sex: Female

DRUGS (3)
  1. TAZOCILLINE [Suspect]
     Dosage: UNKNOWN
     Route: 042
     Dates: start: 20100127, end: 20100217
  2. RIFATER [Concomitant]
     Dosage: UNKNOWN
     Route: 048
     Dates: start: 20100114
  3. NEXIUM [Suspect]
     Dosage: UNKNOWN
     Route: 048
     Dates: start: 20100114, end: 20100223

REACTIONS (3)
  - AGRANULOCYTOSIS [None]
  - LYMPHOCYTE COUNT DECREASED [None]
  - PYREXIA [None]
